FAERS Safety Report 24299343 (Version 1)
Quarter: 2024Q3

REPORT INFORMATION
  Report Type: Report from Study
  Country: CO (occurrence: CO)
  Receive Date: 20240909
  Receipt Date: 20240909
  Transmission Date: 20241017
  Serious: Yes (Hospitalization)
  Sender: BIOGEN
  Company Number: CO-BIOGEN-2023BI01200113

PATIENT
  Sex: Female
  Weight: 69 kg

DRUGS (19)
  1. TYSABRI [Suspect]
     Active Substance: NATALIZUMAB
     Indication: Multiple sclerosis
     Route: 050
     Dates: start: 20150610, end: 20230310
  2. TYSABRI [Suspect]
     Active Substance: NATALIZUMAB
     Route: 050
     Dates: start: 20230310
  3. EXFORGE [Concomitant]
     Active Substance: AMLODIPINE BESYLATE\VALSARTAN
     Indication: Hypertension
     Dosage: HYDROCHLOROTHIAZIDE: 12.5 MG
     Route: 050
     Dates: start: 2013
  4. LAMOTRIGINE [Concomitant]
     Active Substance: LAMOTRIGINE
     Indication: Seizure prophylaxis
     Route: 050
     Dates: start: 2013
  5. LAMOTRIGINE [Concomitant]
     Active Substance: LAMOTRIGINE
     Route: 050
     Dates: start: 2012
  6. METHADONE [Concomitant]
     Active Substance: METHADONE HYDROCHLORIDE
     Indication: Spinal pain
     Dosage: 15 MG IN THE MORNING AND 5 MG AT NIGHT
     Route: 050
     Dates: start: 2013
  7. METHADONE [Concomitant]
     Active Substance: METHADONE HYDROCHLORIDE
     Route: 050
  8. LEVOTHYROXINE [Concomitant]
     Active Substance: LEVOTHYROXINE\LEVOTHYROXINE SODIUM
     Indication: Hypothyroidism
     Route: 050
     Dates: start: 2009
  9. FOLIC ACID [Concomitant]
     Active Substance: FOLIC ACID
     Indication: Scleroderma
     Dosage: 4 TABLETS?EVERY DAY
     Route: 050
     Dates: start: 2019
  10. METHOTREXATE [Concomitant]
     Active Substance: METHOTREXATE
     Indication: Scleroderma
     Dosage: 4 TABLETS
     Route: 050
     Dates: start: 2019
  11. METHOTREXATE [Concomitant]
     Active Substance: METHOTREXATE
     Route: 050
  12. BACLOFEN [Concomitant]
     Active Substance: BACLOFEN
     Indication: Muscle spasticity
     Route: 050
     Dates: start: 2021
  13. LYRICA [Concomitant]
     Active Substance: PREGABALIN
     Indication: Spinal pain
     Route: 050
  14. DULOXETINE [Concomitant]
     Active Substance: DULOXETINE
     Indication: Depression
     Route: 050
     Dates: start: 2013
  15. CLONAZEPAM [Concomitant]
     Active Substance: CLONAZEPAM
     Indication: Insomnia
     Dosage: 2 DROPS?EVERY DAY
     Route: 050
     Dates: start: 2020
  16. ATORVASTATIN [Concomitant]
     Active Substance: ATORVASTATIN
     Indication: Blood cholesterol increased
     Route: 050
     Dates: start: 202301
  17. MIRABEGRON [Concomitant]
     Active Substance: MIRABEGRON
     Indication: Hypertonic bladder
     Route: 050
     Dates: start: 202308
  18. ENABLEX [Concomitant]
     Active Substance: DARIFENACIN HYDROBROMIDE
     Indication: Hypertonic bladder
     Route: 050
     Dates: start: 202308
  19. VITAMIN D NOS [Concomitant]
     Active Substance: CHOLECALCIFEROL\ERGOCALCIFEROL
     Indication: Product used for unknown indication
     Dosage: EVERY DAY
     Route: 050

REACTIONS (5)
  - Multiple sclerosis relapse [Not Recovered/Not Resolved]
  - Urinary incontinence [Not Recovered/Not Resolved]
  - Hypoventilation [Not Recovered/Not Resolved]
  - Weight increased [Not Recovered/Not Resolved]
  - Prescribed underdose [Not Recovered/Not Resolved]

NARRATIVE: CASE EVENT DATE: 20190101
